FAERS Safety Report 23228964 (Version 2)
Quarter: 2025Q3

REPORT INFORMATION
  Report Type: Spontaneous
  Country: EU (occurrence: EU)
  Receive Date: 20231126
  Receipt Date: 20250905
  Transmission Date: 20251021
  Serious: Yes (Hospitalization)
  Sender: INSUD PHARMA
  Company Number: EU-EXELTIS PHARMACEUTICAL HOLDING, S.L.-2311PL07859

PATIENT
  Age: 64 Year
  Sex: Male

DRUGS (18)
  1. OMEPRAZOLE [Suspect]
     Active Substance: OMEPRAZOLE
     Indication: Gastrooesophageal reflux disease
     Dosage: 40 MILLIGRAM, QD
  2. DAPAGLIFLOZIN [Suspect]
     Active Substance: DAPAGLIFLOZIN
     Indication: Type 2 diabetes mellitus
     Dosage: 10 MILLIGRAM, QD
     Route: 048
  3. METFORMIN [Suspect]
     Active Substance: METFORMIN HYDROCHLORIDE
     Indication: Type 2 diabetes mellitus
     Dosage: 1000 MILLIGRAM, QID
     Route: 048
  4. SERTRALINE HYDROCHLORIDE [Suspect]
     Active Substance: SERTRALINE HYDROCHLORIDE
     Indication: Depression
     Dosage: 50 MILLIGRAM, QD MORNING
     Route: 048
  5. SERTRALINE HYDROCHLORIDE [Suspect]
     Active Substance: SERTRALINE HYDROCHLORIDE
     Indication: Insomnia
  6. MIRTAZAPINE [Suspect]
     Active Substance: MIRTAZAPINE
     Indication: Depression
     Dosage: 15 MILLIGRAM, QD EVENING
  7. MIRTAZAPINE [Suspect]
     Active Substance: MIRTAZAPINE
     Indication: Insomnia
  8. CIPROFLOXACIN [Suspect]
     Active Substance: CIPROFLOXACIN
     Indication: Urinary tract infection
     Dosage: 500 MILLIGRAM, BID
     Route: 048
  9. TRAMADOL HYDROCHLORIDE [Suspect]
     Active Substance: TRAMADOL HYDROCHLORIDE
     Indication: Arthralgia
     Dosage: 75 MILLIGRAM, Q8H, DOSE OF PARACETAMOL IN THE COMBINATION PRODUCT WAS 650 MG 3 TIMES DAILY (TRAMADOL
  10. ACETAMINOPHEN [Suspect]
     Active Substance: ACETAMINOPHEN
     Indication: Arthralgia
  11. OXYCODONE [Suspect]
     Active Substance: OXYCODONE
     Indication: Arthralgia
     Route: 042
  12. METAMIZOLE [Suspect]
     Active Substance: METAMIZOLE
     Dosage: 1000 MILLIGRAM, Q8H
     Route: 048
  13. DEXKETOPROFEN [Suspect]
     Active Substance: DEXKETOPROFEN
     Indication: Arthralgia
     Route: 048
  14. PREGABALIN [Suspect]
     Active Substance: PREGABALIN
     Dosage: 75 MILLIGRAM, Q12H
     Route: 048
  15. CIPROFLOXACIN [Concomitant]
     Active Substance: CIPROFLOXACIN
     Indication: Type 2 diabetes mellitus
     Dosage: 500 MILLIGRAM, Q12H
     Route: 048
  16. OMEPRAZOLE [Suspect]
     Active Substance: OMEPRAZOLE
     Indication: Reflux gastritis
     Dosage: 15 MILLIGRAM, QD
  17. PANTOPRAZOLE [Suspect]
     Active Substance: PANTOPRAZOLE
     Indication: Reflux gastritis
  18. PREGABALIN [Suspect]
     Active Substance: PREGABALIN
     Indication: Arthralgia
     Dosage: 75 MILLIGRAM, BID

REACTIONS (5)
  - Arthralgia [Recovered/Resolved]
  - Drug interaction [Recovered/Resolved]
  - Overdose [Recovered/Resolved]
  - Sedation [Recovered/Resolved]
  - Labelled drug-drug interaction issue [Unknown]
